FAERS Safety Report 8479073-5 (Version None)
Quarter: 2012Q2

REPORT INFORMATION
  Report Type: 
  Country: None (occurrence: None)
  Receive Date: 20120629
  Receipt Date: 20120621
  Transmission Date: 20120825
  Serious: Yes (Other)
  Sender: FDA-Public Use
  Company Number: CA-JNJFOC-20120611716

PATIENT
  Sex: Female
  Weight: 74 kg

DRUGS (11)
  1. PANTOPRAZOLE [Concomitant]
     Route: 065
  2. ARAVA [Concomitant]
     Route: 065
  3. LYRICA [Concomitant]
     Route: 065
  4. REMICADE [Suspect]
     Indication: RHEUMATOID ARTHRITIS
     Dosage: 2ND INFUSION
     Route: 042
  5. ATORVASTATIN [Concomitant]
     Route: 065
  6. GLICLAZIDE [Concomitant]
     Route: 065
  7. ASPIRIN [Concomitant]
     Route: 065
  8. PERINDOPRIL ERBUMINE [Concomitant]
     Route: 065
  9. METFORMIN HCL [Concomitant]
     Route: 065
  10. REMICADE [Suspect]
     Route: 042
  11. NOVONAPROX [Concomitant]
     Route: 065

REACTIONS (1)
  - MOBILITY DECREASED [None]
